FAERS Safety Report 6454153 (Version 3)
Quarter: 2015Q2

REPORT INFORMATION
  Report Type: Spontaneous
  Country: DK (occurrence: DK)
  Receive Date: 20071029
  Receipt Date: 20150520
  Transmission Date: 20150821
  Serious: Yes (Death, Hospitalization, Disabling)
  Sender: FDA-Public Use
  Company Number: PHBS2007DK17728

PATIENT
  Age: 24 Year
  Sex: Female

DRUGS (3)
  1. TOBRAMYCIN. [Concomitant]
     Active Substance: TOBRAMYCIN
     Indication: PRODUCT USED FOR UNKNOWN INDICATION
     Dosage: 170 MG
     Route: 042
     Dates: start: 20050318, end: 20050401
  2. TOBRAMYCIN. [Concomitant]
     Active Substance: TOBRAMYCIN
     Dosage: 170 MG
     Route: 042
     Dates: start: 20050407, end: 20050421
  3. TOBI [Suspect]
     Active Substance: TOBRAMYCIN
     Indication: CYSTIC FIBROSIS
     Dosage: 300 MG, BID
     Route: 055
     Dates: end: 20050606

REACTIONS (3)
  - Deafness unilateral [Not Recovered/Not Resolved]
  - Respiratory distress [Unknown]
  - Complications of transplanted lung [Fatal]

NARRATIVE: CASE EVENT DATE: 20051026
